FAERS Safety Report 6759947-3 (Version None)
Quarter: 2010Q2

REPORT INFORMATION
  Report Type: 
  Country: None (occurrence: None)
  Receive Date: 20100604
  Receipt Date: 20100521
  Transmission Date: 20101027
  Serious: Yes (Hospitalization)
  Sender: FDA-Public Use
  Company Number: 7004746

PATIENT
  Age: 61 Year
  Sex: Female
  Weight: 59 kg

DRUGS (7)
  1. REBIF [Suspect]
     Indication: MULTIPLE SCLEROSIS
     Dosage: 44 MCG,  3 IN 1 WK, SUBCUTANEOUS
     Route: 058
     Dates: start: 20100408, end: 20100513
  2. WELLBUTRIN [Concomitant]
  3. ROPINIROLE [Concomitant]
  4. CYMBALTA [Concomitant]
  5. DIAZEPAM [Concomitant]
  6. AMBIEN CR [Concomitant]
  7. MULTIPLE OTHER MEDICATIONS (ALL OTHER THERAPEUTIC PRODUCTS) [Concomitant]

REACTIONS (8)
  - BLOOD GLUCOSE DECREASED [None]
  - HYPOKINESIA [None]
  - HYPOTENSION [None]
  - LISTLESS [None]
  - SEDATION [None]
  - SINUSITIS [None]
  - SPEECH DISORDER [None]
  - URINARY TRACT INFECTION [None]
